FAERS Safety Report 13341149 (Version 1)
Quarter: 2017Q1

REPORT INFORMATION
  Report Type: Spontaneous
  Country: CH (occurrence: ES)
  Receive Date: 20170316
  Receipt Date: 20170316
  Transmission Date: 20170428
  Serious: Yes (Other)
  Sender: FDA-Public Use
  Company Number: CH-LPDUSPRD-20170252

PATIENT
  Age: 60 Year
  Sex: Male

DRUGS (2)
  1. VENOFER [Suspect]
     Active Substance: IRON SUCROSE
     Dosage: 200 MG
     Route: 042
     Dates: start: 20160302, end: 20160311
  2. KREON [Concomitant]
     Active Substance: PANCRELIPASE
     Dates: start: 20160302

REACTIONS (3)
  - Toxic skin eruption [Unknown]
  - Rash pruritic [Unknown]
  - Hidradenitis [Unknown]

NARRATIVE: CASE EVENT DATE: 20160305
